FAERS Safety Report 6355626-5 (Version None)
Quarter: 2009Q3

REPORT INFORMATION
  Report Type: 
  Country: None (occurrence: None)
  Receive Date: 20090914
  Receipt Date: 20090904
  Transmission Date: 20100115
  Serious: Yes (Hospitalization)
  Sender: FDA-Public Use
  Company Number: FR-MERCK-0909FRA00013

PATIENT
  Age: 77 Year
  Sex: Female

DRUGS (2)
  1. INVANZ [Suspect]
     Indication: ENTEROCOCCAL INFECTION
     Route: 042
     Dates: start: 20090703, end: 20090808
  2. METRONIDAZOLE [Suspect]
     Indication: ESCHERICHIA SEPSIS
     Route: 042
     Dates: start: 20090803, end: 20090813

REACTIONS (2)
  - ENCEPHALOPATHY [None]
  - MYOCLONUS [None]
